FAERS Safety Report 7167391-2 (Version None)
Quarter: 2010Q4

REPORT INFORMATION
  Report Type: 
  Country: None (occurrence: None)
  Receive Date: 20101216
  Receipt Date: 20091116
  Transmission Date: 20110411
  Serious: No
  Sender: FDA-Public Use
  Company Number: A0816203A

PATIENT
  Sex: Female

DRUGS (1)
  1. COMMIT [Suspect]
     Route: 002
     Dates: start: 20091108, end: 20091108

REACTIONS (4)
  - ACCIDENTAL OVERDOSE [None]
  - HEADACHE [None]
  - MEDICATION ERROR [None]
  - PARAESTHESIA [None]
